FAERS Safety Report 5085767-4 (Version None)
Quarter: 2006Q3

REPORT INFORMATION
  Report Type: 
  Country: None (occurrence: None)
  Receive Date: 20060817
  Receipt Date: 20060803
  Transmission Date: 20061208
  Serious: Yes (Death)
  Sender: FDA-Public Use
  Company Number: 2006096396

PATIENT
  Age: 41 Year
  Sex: Male
  Weight: 90.7194 kg

DRUGS (3)
  1. CELEBREX [Suspect]
     Indication: ARTHRALGIA
     Dosage: (200 MG)
     Dates: start: 20000821
  2. CELEBREX [Suspect]
     Indication: DERMAL CYST
     Dosage: (200 MG)
     Dates: start: 20000821
  3. CELEBREX [Suspect]
     Indication: MUSCULOSKELETAL PAIN
     Dosage: (200 MG)
     Dates: start: 20000821

REACTIONS (2)
  - ARTERIOSCLEROSIS CORONARY ARTERY [None]
  - MYOCARDIAL INFARCTION [None]
